FAERS Safety Report 10229708 (Version 1)
Quarter: 2014Q2

REPORT INFORMATION
  Report Type: Spontaneous
  Country: US (occurrence: None)
  Receive Date: 20140610
  Receipt Date: 20140610
  Transmission Date: 20141212
  Serious: Yes (Hospitalization, Other)
  Sender: FDA-Public Use
  Company Number: None

PATIENT
  Age: 36 Year
  Sex: Female
  Weight: 81.65 kg

DRUGS (3)
  1. NUVIGIL [Suspect]
     Indication: DRUG THERAPY
     Route: 048
     Dates: start: 20140428, end: 20140523
  2. HYZARR HCT [Concomitant]
  3. OMEPRAZOLE [Concomitant]

REACTIONS (6)
  - Rash [None]
  - Streptococcal infection [None]
  - No therapeutic response [None]
  - Blister [None]
  - Pain of skin [None]
  - Stevens-Johnson syndrome [None]
